FAERS Safety Report 14055531 (Version 2)
Quarter: 2017Q4

REPORT INFORMATION
  Report Type: Report from Study
  Country: US (occurrence: US)
  Receive Date: 20171006
  Receipt Date: 20171201
  Transmission Date: 20180321
  Serious: Yes (Death, Hospitalization, Other)
  Sender: FDA-Public Use
  Company Number: US-BAYER-2017-112059

PATIENT
  Age: 75 Year
  Sex: Female

DRUGS (4)
  1. STIVARGA [Suspect]
     Active Substance: REGORAFENIB
     Indication: METASTASES TO LUNG
     Dosage: 80 MG DAILY DOSE
     Route: 048
     Dates: start: 2017, end: 201707
  2. STIVARGA [Suspect]
     Active Substance: REGORAFENIB
     Indication: METASTASES TO BILIARY TRACT
  3. STIVARGA [Suspect]
     Active Substance: REGORAFENIB
     Indication: RECTOSIGMOID CANCER
     Dosage: DAILY DOSE 160 MG
     Route: 048
     Dates: start: 20170510, end: 2017
  4. STIVARGA [Suspect]
     Active Substance: REGORAFENIB
     Indication: METASTASES TO LIVER

REACTIONS (7)
  - Palmar-plantar erythrodysaesthesia syndrome [None]
  - Pneumonia [None]
  - Adverse drug reaction [Unknown]
  - Pulmonary embolism [None]
  - Rectosigmoid cancer [None]
  - Pulmonary mass [None]
  - Colon cancer metastatic [Fatal]

NARRATIVE: CASE EVENT DATE: 20170818
